FAERS Safety Report 7070977-7 (Version None)
Quarter: 2010Q4

REPORT INFORMATION
  Report Type: 
  Country: None (occurrence: None)
  Receive Date: 20101027
  Receipt Date: 20101027
  Transmission Date: 20110411
  Serious: No
  Sender: FDA-Public Use
  Company Number: None

PATIENT
  Age: 48 Year
  Sex: Male
  Weight: 90.7194 kg

DRUGS (1)
  1. BENADRYL [Suspect]
     Indication: INSOMNIA
     Dosage: 1 GELCAP 1 DOSE PO
     Route: 048
     Dates: start: 20100903, end: 20100903

REACTIONS (2)
  - HYPERACUSIS [None]
  - TINNITUS [None]
